FAERS Safety Report 11142333 (Version 1)
Quarter: 2015Q2

REPORT INFORMATION
  Report Type: Spontaneous
  Country: FR (occurrence: FR)
  Receive Date: 20150527
  Receipt Date: 20150527
  Transmission Date: 20150821
  Serious: Yes (Death, Life-Threatening, Hospitalization)
  Sender: FDA-Public Use
  Company Number: FR-BAXTER-2015BAX026642

PATIENT
  Age: 71 Year
  Sex: Female

DRUGS (3)
  1. EPIRUBICINE [Suspect]
     Active Substance: EPIRUBICIN
     Indication: BREAST CANCER
     Route: 042
     Dates: end: 20130327
  2. FLUOROURACILE [Suspect]
     Active Substance: FLUOROURACIL
     Indication: BREAST CANCER
     Route: 042
     Dates: end: 20130327
  3. ENDOXAN 1000 MG, POUDRE POUR SOLUTION INJECTABLE [Suspect]
     Active Substance: CYCLOPHOSPHAMIDE
     Indication: BREAST CANCER
     Route: 042
     Dates: end: 20130327

REACTIONS (4)
  - Cardiogenic shock [Fatal]
  - Bone marrow failure [Fatal]
  - Pneumonia [Unknown]
  - Septic shock [Fatal]

NARRATIVE: CASE EVENT DATE: 201304
